FAERS Safety Report 23951037 (Version 1)
Quarter: 2024Q2

REPORT INFORMATION
  Report Type: Report from Study
  Country: US (occurrence: US)
  Receive Date: 20240607
  Receipt Date: 20240607
  Transmission Date: 20240716
  Serious: No
  Sender: FDA-Public Use
  Company Number: US-SPRINGWORKS THERAPEUTICS-SW-001618

PATIENT
  Age: 65 Year
  Sex: Female

DRUGS (2)
  1. NIROGACESTAT [Suspect]
     Active Substance: NIROGACESTAT
     Indication: Desmoid tumour
     Dosage: 150 MILLIGRAM, BID
     Route: 048
     Dates: start: 20240428
  2. NIROGACESTAT [Suspect]
     Active Substance: NIROGACESTAT
     Dosage: 1 TABLET , BID
     Dates: start: 20240521

REACTIONS (14)
  - Vomiting [Unknown]
  - Dry eye [Unknown]
  - Dry throat [Unknown]
  - Nasal dryness [Unknown]
  - Dry skin [Unknown]
  - Illness [Unknown]
  - Dehydration [Unknown]
  - Dyspepsia [Unknown]
  - Dry mouth [Unknown]
  - Headache [Unknown]
  - Nausea [Unknown]
  - Diarrhoea [Unknown]
  - Intentional dose omission [Unknown]
  - Intentional underdose [Unknown]

NARRATIVE: CASE EVENT DATE: 20240514
